FAERS Safety Report 9168020 (Version 2)
Quarter: 2013Q1

REPORT INFORMATION
  Report Type: Spontaneous
  Country: JP (occurrence: JP)
  Receive Date: 20130318
  Receipt Date: 20130328
  Transmission Date: 20140127
  Serious: Yes (Other)
  Sender: FDA-Public Use
  Company Number: JP-MPIJNJ-2013-01956

PATIENT
  Sex: 0

DRUGS (6)
  1. VELCADE [Suspect]
     Indication: PLASMA CELL LEUKAEMIA
     Dosage: UNK
     Route: 065
     Dates: start: 201106
  2. DEXAMETHASONE [Concomitant]
     Dosage: UNK
     Dates: start: 201106
  3. DOXORUBICIN [Concomitant]
     Dosage: UNK
     Dates: start: 201106
  4. LENALIDOMIDE [Concomitant]
     Dosage: UNK
     Dates: start: 2011
  5. CYCLOPHOSPHAMIDE [Concomitant]
     Dosage: UNK
     Dates: start: 2011
  6. MELPHALAN [Concomitant]
     Dosage: UNK
     Dates: start: 2011

REACTIONS (3)
  - Graft versus host disease [Unknown]
  - Neuropathy peripheral [Unknown]
  - Off label use [Unknown]
